FAERS Safety Report 6884601-7 (Version None)
Quarter: 2010Q3

REPORT INFORMATION
  Report Type: 
  Country: None (occurrence: None)
  Receive Date: 20100729
  Receipt Date: 20070712
  Transmission Date: 20110219
  Serious: Yes (Hospitalization)
  Sender: FDA-Public Use
  Company Number: US-PFIZER INC-2007058434

PATIENT
  Sex: Female
  Weight: 82.6 kg

DRUGS (6)
  1. CELEBREX [Suspect]
     Indication: ARTHRITIS
     Route: 048
  2. ADVIL LIQUI-GELS [Concomitant]
  3. ALEVE (CAPLET) [Concomitant]
  4. ASPIRIN [Concomitant]
  5. ASCRIPTIN [Concomitant]
  6. VIOXX [Concomitant]

REACTIONS (2)
  - CEREBROVASCULAR ACCIDENT [None]
  - THROMBOSIS [None]
